FAERS Safety Report 5018126-0 (Version None)
Quarter: 2006Q2

REPORT INFORMATION
  Report Type: 
  Country: None (occurrence: None)
  Receive Date: 20060530
  Receipt Date: 20050118
  Transmission Date: 20061013
  Serious: Yes (Hospitalization)
  Sender: FDA-Public Use
  Company Number: 2005015467

PATIENT
  Age: 69 Year
  Sex: Female
  Weight: 101 kg

DRUGS (5)
  1. LYRICA [Suspect]
     Indication: BACK PAIN
     Dosage: 300 MG (150 MG, 2 IN 1 D), ORAL
     Route: 048
     Dates: start: 20041001, end: 20050101
  2. APOREX (DEXTROPROPOXYPHENE HYDROCHLORIDE, PARACETAMOL) [Concomitant]
  3. NAPROXEN [Concomitant]
  4. ZOPICLONE (ZOPICLONE) [Concomitant]
  5. FUROSEMIDE [Concomitant]

REACTIONS (5)
  - DEMENTIA [None]
  - DIPLOPIA [None]
  - INSOMNIA [None]
  - LOBAR PNEUMONIA [None]
  - MENINGITIS [None]
